FAERS Safety Report 5941989-9 (Version None)
Quarter: 2008Q4

REPORT INFORMATION
  Report Type: 
  Country: None (occurrence: None)
  Receive Date: 20081031
  Receipt Date: 20081024
  Transmission Date: 20090506
  Serious: Yes (Other)
  Sender: FDA-Public Use
  Company Number: DSA_32585_2008

PATIENT
  Sex: Female
  Weight: 58 kg

DRUGS (9)
  1. ENALAPRIL MALEATE [Suspect]
     Indication: DRUG USE FOR UNKNOWN INDICATION
     Dosage: 10 MG QD ORAL
     Route: 048
  2. NIFEDIPINE [Suspect]
     Indication: DRUG USE FOR UNKNOWN INDICATION
     Dosage: 60 MG BID ORAL
     Route: 048
  3. FOLIC ACID [Concomitant]
  4. CLONIDINE [Concomitant]
  5. PARICALCITOL [Concomitant]
  6. PHOSLO [Concomitant]
  7. NADOLOL [Concomitant]
  8. ARANESP [Suspect]
     Indication: DIALYSIS
     Dosage: 200 UG, 1X 4 DAYS SUBCUTANEOUS
     Route: 058
  9. ESOMEPRAZOLE MAGNESIUM [Suspect]
     Indication: DRUG USE FOR UNKNOWN INDICATION
     Dosage: 20 MG, BID, ORAL
     Route: 048

REACTIONS (3)
  - APLASTIC ANAEMIA [None]
  - BLOOD PRESSURE INCREASED [None]
  - THERAPEUTIC RESPONSE DECREASED [None]
